FAERS Safety Report 24686737 (Version 1)
Quarter: 2024Q4

REPORT INFORMATION
  Report Type: Spontaneous
  Country: US (occurrence: None)
  Receive Date: 20241129
  Receipt Date: 20241129
  Transmission Date: 20250115
  Serious: Yes (Other)
  Sender: Public
  Company Number: None

PATIENT
  Age: 68 Year
  Sex: Female
  Weight: 99 kg

DRUGS (17)
  1. TAXOL [Suspect]
     Active Substance: PACLITAXEL
     Indication: Breast cancer
     Dosage: OTHER ROUTE : PORT/VEIN;?
     Route: 050
     Dates: start: 20200204, end: 20200331
  2. HERCEPTIN [Suspect]
     Active Substance: TRASTUZUMAB
  3. Prozac 5 mg weekly [Concomitant]
  4. 5-http amino acid [Concomitant]
  5. KERATIN [Concomitant]
     Active Substance: KERATIN
  6. UNSPECIFIED INGREDIENT [Concomitant]
     Active Substance: UNSPECIFIED INGREDIENT
  7. complex B Vitamins [Concomitant]
  8. GLUCOSAMINE SULFATE [Concomitant]
     Active Substance: GLUCOSAMINE SULFATE
  9. OMEGA-3 ACIDS [Concomitant]
     Active Substance: OMEGA-3 FATTY ACIDS
  10. POTASSIUM [Concomitant]
     Active Substance: POTASSIUM
  11. HERBALS\TURMERIC [Concomitant]
     Active Substance: HERBALS\TURMERIC
  12. ZINC [Concomitant]
     Active Substance: ZINC
  13. Selemium [Concomitant]
  14. Pro-biotic [Concomitant]
  15. CHROMIUM [Concomitant]
     Active Substance: CHROMIC CHLORIDE\CHROMIUM
  16. VITAMIN C [Concomitant]
     Active Substance: ASCORBIC ACID
  17. calcium-magnesium and Collagen [Concomitant]

REACTIONS (23)
  - Pain [None]
  - Depression [None]
  - Anxiety [None]
  - Mood altered [None]
  - Haemoptysis [None]
  - Vision blurred [None]
  - Photophobia [None]
  - Dizziness [None]
  - Nausea [None]
  - Headache [None]
  - Arthralgia [None]
  - Fatigue [None]
  - Food allergy [None]
  - Rash [None]
  - Skin laceration [None]
  - Impaired healing [None]
  - Vein disorder [None]
  - Dysphagia [None]
  - Amnesia [None]
  - Confusional state [None]
  - Dysgeusia [None]
  - Stomatitis [None]
  - Immune system disorder [None]

NARRATIVE: CASE EVENT DATE: 20200302
